FAERS Safety Report 4540716-X (Version None)
Quarter: 2004Q4

REPORT INFORMATION
  Report Type: 
  Country: None (occurrence: None)
  Receive Date: 20041229
  Receipt Date: 20041119
  Transmission Date: 20050328
  Serious: Yes (Death)
  Sender: FDA-Public Use
  Company Number: 200414332FR

PATIENT
  Age: 73 Year
  Sex: Female

DRUGS (4)
  1. TERCIAN [Concomitant]
     Route: 048
     Dates: start: 20041005, end: 20041014
  2. DAONIL [Suspect]
     Indication: DIABETES MELLITUS NON-INSULIN-DEPENDENT
     Route: 048
     Dates: start: 20040101, end: 20041014
  3. ZYPREXA [Suspect]
     Route: 048
     Dates: start: 20041011, end: 20041014
  4. BEFIZAL [Suspect]
     Route: 048
     Dates: end: 20041014

REACTIONS (1)
  - MYOCARDIAL INFARCTION [None]
